FAERS Safety Report 4698792-X (Version None)
Quarter: 2005Q2

REPORT INFORMATION
  Report Type: 
  Country: None (occurrence: None)
  Receive Date: 20050622
  Receipt Date: 20050616
  Transmission Date: 20051028
  Serious: Yes (Death)
  Sender: FDA-Public Use
  Company Number: S05-USA-03134-01

PATIENT
  Age: 15 Year
  Sex: Male

DRUGS (2)
  1. LEXAPRO [Suspect]
     Indication: DEPRESSION
     Dosage: 10 MG QD PO
     Route: 048
     Dates: start: 20030414, end: 20030419
  2. LEXAPRO [Suspect]
     Indication: DEPRESSION
     Dosage: 20 MG, QD, PO
     Route: 048
     Dates: start: 20030420, end: 20030619

REACTIONS (5)
  - AGGRESSION [None]
  - ANGER [None]
  - COMPLETED SUICIDE [None]
  - HOSTILITY [None]
  - INJURY ASPHYXIATION [None]
